FAERS Safety Report 15937243 (Version 2)
Quarter: 2019Q1

REPORT INFORMATION
  Report Type: Spontaneous
  Country: US (occurrence: US)
  Receive Date: 20190208
  Receipt Date: 20190315
  Transmission Date: 20190417
  Serious: Yes (Hospitalization)
  Sender: FDA-Public Use
  Company Number: US-ALKERMES INC.-ALK-2019-000581

PATIENT
  Age: 31 Year
  Sex: Male
  Weight: 82.54 kg

DRUGS (3)
  1. VIVITROL [Suspect]
     Active Substance: NALTREXONE
     Indication: DRUG DEPENDENCE
     Dosage: 380 MG, QMO
     Route: 030
     Dates: start: 20190110, end: 20190205
  2. OTHER THERAPEUTIC PRODUCTS [Concomitant]
     Active Substance: UNSPECIFIED INGREDIENT
     Indication: DEPRESSION
  3. VIVITROL [Suspect]
     Active Substance: NALTREXONE
     Dosage: 380 MG, QMO
     Route: 030
     Dates: start: 20161215, end: 20170808

REACTIONS (5)
  - Emotional distress [Unknown]
  - Suicide attempt [Recovered/Resolved]
  - Therapy cessation [Recovered/Resolved]
  - Feeling of despair [Recovered/Resolved]
  - Death of relative [Recovered/Resolved]

NARRATIVE: CASE EVENT DATE: 20190111
